FAERS Safety Report 5211909-3 (Version None)
Quarter: 2006Q4

REPORT INFORMATION
  Report Type: 
  Country: None (occurrence: None)
  Receive Date: 20061107
  Receipt Date: 20060729
  Transmission Date: 20070319
  Serious: No
  Sender: FDA-Public Use
  Company Number: 200614894BWH

PATIENT
  Age: 81 Year
  Sex: Male

DRUGS (1)
  1. LEVITRA [Suspect]
     Indication: DRUG USE FOR UNKNOWN INDICATION
     Dosage: ONCE, ORAL
     Route: 048
     Dates: start: 20060701

REACTIONS (4)
  - BLOOD PRESSURE DECREASED [None]
  - DIZZINESS [None]
  - HEADACHE [None]
  - NAUSEA [None]
